FAERS Safety Report 9799968 (Version 1)
Quarter: 2014Q1

REPORT INFORMATION
  Report Type: Spontaneous
  Country: US (occurrence: US)
  Receive Date: 20140106
  Receipt Date: 20140106
  Transmission Date: 20141002
  Serious: Yes (Hospitalization)
  Sender: FDA-Public Use
  Company Number: US-GILEAD-2010-0030373

PATIENT
  Age: 55 Year
  Sex: Female
  Weight: 68.25 kg

DRUGS (14)
  1. LETAIRIS [Suspect]
     Indication: PULMONARY ARTERIAL HYPERTENSION
     Route: 048
     Dates: start: 20090928
  2. REVATIO [Concomitant]
  3. PREDNISONE [Concomitant]
  4. XOPENEX [Concomitant]
  5. SINGULAIR [Concomitant]
  6. CELLCEPT [Concomitant]
  7. PHENERGAN [Concomitant]
  8. XANAX [Concomitant]
  9. AMBIEN [Concomitant]
  10. LOMOTIL [Concomitant]
  11. CELEBREX [Concomitant]
  12. ROPINIROLE [Concomitant]
  13. AMPICILLIN [Concomitant]
  14. NEXIUM [Concomitant]

REACTIONS (1)
  - Sinusitis [Recovered/Resolved]
